FAERS Safety Report 10775379 (Version 1)
Quarter: 2015Q1

REPORT INFORMATION
  Report Type: Spontaneous
  Country: CA (occurrence: None)
  Receive Date: 20150204
  Receipt Date: 20150204
  Transmission Date: 20150721
  Serious: Yes (Other)
  Sender: FDA-Public Use
  Company Number: 2721429

PATIENT
  Age: 34 Year
  Sex: Female
  Weight: 77 kg

DRUGS (3)
  1. FENTANYL CITRATE. [Suspect]
     Active Substance: FENTANYL CITRATE
     Indication: EPIDURAL ANAESTHESIA
     Route: 037
  2. BUPIVACAINE HYDROCHLORIDE. [Suspect]
     Active Substance: BUPIVACAINE HYDROCHLORIDE
     Indication: EPIDURAL ANAESTHESIA
     Route: 037
  3. LIDOCAINE HYDROCHLORIDE. [Suspect]
     Active Substance: LIDOCAINE HYDROCHLORIDE
     Indication: EPIDURAL ANAESTHESIA
     Dosage: 5 MCG/ML, INTRATHECAL
     Route: 037

REACTIONS (5)
  - Incorrect route of drug administration [None]
  - Maternal exposure during delivery [None]
  - Anaesthetic complication [None]
  - Paraesthesia [None]
  - Dyspnoea [None]
